FAERS Safety Report 13390605 (Version 4)
Quarter: 2017Q2

REPORT INFORMATION
  Report Type: Spontaneous
  Country: CH (occurrence: GB)
  Receive Date: 20170331
  Receipt Date: 20170508
  Transmission Date: 20170830
  Serious: Yes (Other)
  Sender: FDA-Public Use
  Company Number: CH-LPDUSPRD-20170345

PATIENT
  Age: 29 Year
  Sex: Female

DRUGS (7)
  1. FERINJECT [Suspect]
     Active Substance: FERRIC CARBOXYMALTOSE
     Dosage: DOSE UNKNOWN
     Route: 065
  2. VENOFER [Suspect]
     Active Substance: IRON SUCROSE
     Dosage: DOSE UNKNOWN
     Route: 065
  3. CALCICHEW D3 [Suspect]
     Active Substance: CALCIUM\CHOLECALCIFEROL
     Dosage: DOSE UNKNOWN
     Route: 065
  4. AZATHIOPRINE. [Concomitant]
     Active Substance: AZATHIOPRINE
     Dosage: 75 MG
     Route: 065
  5. PREDNISOLONE. [Suspect]
     Active Substance: PREDNISOLONE
     Dosage: 30 MG; THEN 20 MG
     Route: 065
  6. SULPHAMETHOXYPYRIDAZINE [Suspect]
     Active Substance: SULFAMETHOXYPYRIDAZINE
     Dosage: 500 MG
     Route: 065
  7. MALTOFER [Suspect]
     Active Substance: IRON POLYMALTOSE
     Dosage: DOSE UNKNOWN
     Route: 048

REACTIONS (8)
  - Aphasia [Unknown]
  - Vocal cord disorder [Unknown]
  - Tuberculosis [Unknown]
  - Arthritis [Unknown]
  - Rash [Unknown]
  - Dysphonia [Unknown]
  - Lymphopenia [Unknown]
  - Cough [Unknown]
